FAERS Safety Report 7956320-7 (Version None)
Quarter: 2011Q4

REPORT INFORMATION
  Report Type: 
  Country: None (occurrence: None)
  Receive Date: 20111205
  Receipt Date: 20111130
  Transmission Date: 20120403
  Serious: Yes (Hospitalization, Other)
  Sender: FDA-Public Use
  Company Number: JP-BAYER-2011-029843

PATIENT
  Age: 81 Year
  Sex: Female
  Weight: 32 kg

DRUGS (12)
  1. CLARITHROMYCIN [Concomitant]
     Dosage: DAILY DOSE 800 MG
     Route: 048
     Dates: start: 20110318
  2. HERBAL PREPARATION [Concomitant]
     Dosage: DAILY DOSE 7.5 G
     Route: 048
  3. URSO 250 [Concomitant]
     Dosage: DAILY DOSE 600 MG
     Route: 048
     Dates: start: 20110318
  4. NEXAVAR [Suspect]
     Indication: HEPATIC NEOPLASM MALIGNANT
     Dosage: DAILY DOSE 200 MG
     Route: 048
     Dates: start: 20110329
  5. LASOPRAN OD [Concomitant]
     Dosage: DAILY DOSE 15 MG
     Route: 048
     Dates: start: 20110318
  6. HERBAL PREPARATION [Concomitant]
     Dosage: DAILY DOSE 7.5 G
     Route: 048
     Dates: start: 20110317
  7. MAGNESIUM SULFATE [Concomitant]
     Dosage: DAILY DOSE 1500 MG
     Route: 048
     Dates: start: 20110320
  8. LEVOFLOXACIN [Concomitant]
     Dosage: DAILY DOSE 250 MG
     Route: 048
     Dates: start: 20110318
  9. EBUTOL [Concomitant]
     Dosage: DAILY DOSE 750 MG
     Route: 048
     Dates: start: 20110318
  10. LIVACT [Concomitant]
     Dosage: DAILY DOSE 3 DF
     Route: 048
     Dates: start: 20110318
  11. REBAMIPIDE [Concomitant]
     Dosage: DAILY DOSE 300 MG
     Route: 048
     Dates: start: 20110318
  12. UREPEARL [Concomitant]
     Dosage: UNK
     Route: 061
     Dates: start: 20110329

REACTIONS (3)
  - HAND FRACTURE [None]
  - PYREXIA [None]
  - DIZZINESS [None]
